FAERS Safety Report 5218041-3 (Version None)
Quarter: 2007Q1

REPORT INFORMATION
  Report Type: 
  Country: None (occurrence: None)
  Receive Date: 20061130
  Receipt Date: 20060901
  Transmission Date: 20070707
  Serious: Yes (Hospitalization)
  Sender: FDA-Public Use
  Company Number: US200609001168

PATIENT
  Sex: Male
  Weight: 158.7 kg

DRUGS (6)
  1. ZYPREXA [Suspect]
     Dosage: 10 MG
     Dates: start: 19970601, end: 20051201
  2. RISPERIDONE [Concomitant]
  3. HALOPERIDOL [Concomitant]
  4. CITALOPRAM HYDROBROMIDE [Concomitant]
  5. NEFAZODONE HCL [Concomitant]
  6. PAROXETINE [Concomitant]

REACTIONS (1)
  - DIABETES MELLITUS [None]
